FAERS Safety Report 12212746 (Version 3)
Quarter: 2017Q1

REPORT INFORMATION
  Report Type: Spontaneous
  Country: DE (occurrence: DE)
  Receive Date: 20160328
  Receipt Date: 20170310
  Transmission Date: 20170428
  Serious: Yes (Death, Hospitalization, Other)
  Sender: FDA-Public Use
  Company Number: DE-009507513-1603DEU010122

PATIENT
  Age: 38 Year
  Sex: Male

DRUGS (5)
  1. PEMBROLIZUMAB. [Suspect]
     Active Substance: PEMBROLIZUMAB
     Indication: MALIGNANT MELANOMA
     Dosage: 2 MG/KG, ONCW IN 3 WEEKS (ALSO REPORTED AS 3 TIMES A WEEK)
     Route: 042
     Dates: start: 20150415, end: 20151209
  2. TRAMETINIB [Concomitant]
     Active Substance: TRAMETINIB
     Dosage: 2 MG, QD
     Dates: start: 201502, end: 201504
  3. DABRAFENIB [Concomitant]
     Active Substance: DABRAFENIB
     Indication: MALIGNANT MELANOMA
     Dosage: 150MG BID, TOTAL DAILY DOSE: 300MG
     Route: 048
     Dates: start: 201410, end: 201504
  4. INTERLEUKIN 2 (HOMEOPATHIC) [Concomitant]
     Indication: METASTASES TO THORAX
     Dosage: TOTAL 8 TIMES
     Dates: start: 20151111
  5. DABRAFENIB [Concomitant]
     Active Substance: DABRAFENIB
     Dosage: 150MG BID, TOTAL DAILY DOSE: 300MG
     Route: 048
     Dates: start: 201511

REACTIONS (3)
  - Radiculopathy [Recovered/Resolved]
  - Death [Fatal]
  - Malignant neoplasm progression [Unknown]

NARRATIVE: CASE EVENT DATE: 20160225
